FAERS Safety Report 18817202 (Version 1)
Quarter: 2021Q1

REPORT INFORMATION
  Report Type: Spontaneous
  Country: JP (occurrence: JP)
  Receive Date: 20210201
  Receipt Date: 20210201
  Transmission Date: 20210419
  Serious: Yes (Hospitalization)
  Sender: FDA-Public Use
  Company Number: JP-TEVA-2021-JP-000374J

PATIENT
  Age: 78 Year
  Sex: Male

DRUGS (1)
  1. ADEFURONIC ZUPO 50 [Suspect]
     Active Substance: DICLOFENAC SODIUM
     Indication: PRODUCT USED FOR UNKNOWN INDICATION
     Route: 065
     Dates: start: 201912, end: 201912

REACTIONS (1)
  - Duodenal ulcer haemorrhage [Unknown]
